FAERS Safety Report 11219916 (Version 2)
Quarter: 2015Q2

REPORT INFORMATION
  Report Type: Spontaneous
  Country: US (occurrence: US)
  Receive Date: 20150625
  Receipt Date: 20150629
  Transmission Date: 20150821
  Serious: Yes (Other)
  Sender: FDA-Public Use
  Company Number: US-TEVA-573344USA

PATIENT
  Sex: Male

DRUGS (1)
  1. OTFC [Suspect]
     Active Substance: FENTANYL CITRATE
     Indication: BREAKTHROUGH PAIN
     Route: 065

REACTIONS (2)
  - Terminal state [Unknown]
  - Pain [Unknown]
